FAERS Safety Report 15246399 (Version 6)
Quarter: 2019Q4

REPORT INFORMATION
  Report Type: Spontaneous
  Country: IT (occurrence: IT)
  Receive Date: 20180806
  Receipt Date: 20191003
  Transmission Date: 20200122
  Serious: Yes (Other)
  Sender: FDA-Public Use
  Company Number: IT-MYLANLABS-2018M1058008

PATIENT
  Age: 59 Year
  Sex: Male

DRUGS (5)
  1. GLICLAZIDE [Suspect]
     Active Substance: GLICLAZIDE
     Indication: TYPE 2 DIABETES MELLITUS
     Dosage: 80 MILLIGRAM, TID (80 MG, QD)
     Route: 048
  2. METFORMIN [Suspect]
     Active Substance: METFORMIN HYDROCHLORIDE
     Indication: TYPE 2 DIABETES MELLITUS
     Dosage: 2.5 GRAM, QD
     Route: 048
  3. INSULIN GLARGINE [Suspect]
     Active Substance: INSULIN GLARGINE
     Indication: TYPE 2 DIABETES MELLITUS
     Dosage: 10 INTERNATIONAL UNIT, QD
  4. SITAGLIPTIN [Suspect]
     Active Substance: SITAGLIPTIN
     Indication: TYPE 2 DIABETES MELLITUS
     Dosage: 100 MILLIGRAM, QD
     Route: 048
  5. GLICLAZIDE [Suspect]
     Active Substance: GLICLAZIDE
     Dosage: 240 MILLIGRAM, QD (80 MG, THREE TIMES/DAY)
     Route: 048

REACTIONS (3)
  - Diabetes mellitus [Unknown]
  - Diabetes mellitus inadequate control [Recovered/Resolved]
  - Treatment failure [Unknown]

NARRATIVE: CASE EVENT DATE: 2018
